FAERS Safety Report 21937372 (Version 2)
Quarter: 2023Q1

REPORT INFORMATION
  Report Type: Spontaneous
  Country: US (occurrence: US)
  Receive Date: 20230201
  Receipt Date: 20230329
  Transmission Date: 20230417
  Serious: Yes (Hospitalization, Other)
  Sender: FDA-Public Use
  Company Number: US-PROCTER_AND_GAMBLE-GS23009058

PATIENT
  Age: 53 Year
  Sex: Male
  Weight: 102.1 kg

DRUGS (3)
  1. OLD SPICE KRAKENGARD (ALUMINUM ZIRCONIUM TETRACHLOROHYDREX GLY) [Suspect]
     Active Substance: ALUMINUM ZIRCONIUM TETRACHLOROHYDREX GLY
     Dosage: 2 SWIPES ON EACH ARM, ONCE A DAY
     Route: 061
     Dates: start: 20230119, end: 20230119
  2. ACETAMINOPHEN [Concomitant]
     Active Substance: ACETAMINOPHEN
  3. DIPHENHYDRAMINE [Concomitant]
     Active Substance: DIPHENHYDRAMINE

REACTIONS (17)
  - Anaphylactic reaction [Recovered/Resolved]
  - Hypersensitivity [Recovered/Resolved]
  - Rash erythematous [Recovered/Resolved]
  - Skin burning sensation [Recovering/Resolving]
  - Erythema [Recovered/Resolved]
  - Tongue discomfort [Recovering/Resolving]
  - Rash pruritic [Recovered/Resolved]
  - Swollen tongue [Recovered/Resolved]
  - Urticaria [Recovered/Resolved]
  - Facial pain [Recovered/Resolved]
  - Swelling face [Recovered/Resolved]
  - Swelling of eyelid [Recovered/Resolved]
  - Pruritus [Recovered/Resolved]
  - Leukocytosis [Unknown]
  - Blood glucose increased [Unknown]
  - Carbon dioxide decreased [Unknown]
  - Glomerular filtration rate decreased [Unknown]

NARRATIVE: CASE EVENT DATE: 20230101
